FAERS Safety Report 6794502-0 (Version None)
Quarter: 2010Q2

REPORT INFORMATION
  Report Type: 
  Country: None (occurrence: None)
  Receive Date: 20100625
  Receipt Date: 20100614
  Transmission Date: 20101027
  Serious: Yes (Other)
  Sender: FDA-Public Use
  Company Number: US-PFIZER INC-2010074967

PATIENT
  Sex: Male
  Weight: 104 kg

DRUGS (5)
  1. CHANTIX [Suspect]
     Indication: SMOKING CESSATION THERAPY
     Dosage: 0.5 MG, 2X/DAY
     Route: 048
     Dates: start: 20100501, end: 20100613
  2. FLOMAX [Concomitant]
     Dosage: UNK
  3. AMARYL [Concomitant]
     Dosage: UNK
  4. TOPROL-XL [Concomitant]
     Dosage: UNK
  5. MICARDIS [Concomitant]
     Dosage: UNK

REACTIONS (6)
  - BACK PAIN [None]
  - FEELING ABNORMAL [None]
  - HYPERSOMNIA [None]
  - NIGHT SWEATS [None]
  - PAIN [None]
  - RENAL PAIN [None]
